FAERS Safety Report 13899347 (Version 1)
Quarter: 2017Q3

REPORT INFORMATION
  Report Type: Report from Study
  Country: US (occurrence: US)
  Receive Date: 20170823
  Receipt Date: 20170823
  Transmission Date: 20171127
  Serious: Yes (Other)
  Sender: FDA-Public Use
  Company Number: US-JAZZ-2017-US-007131

PATIENT
  Age: 33 Year
  Sex: Female

DRUGS (4)
  1. XYREM [Suspect]
     Active Substance: SODIUM OXYBATE
     Indication: NARCOLEPSY
     Dosage: 2.5 G, BID
     Route: 048
     Dates: start: 201705, end: 201705
  2. XYREM [Suspect]
     Active Substance: SODIUM OXYBATE
     Dosage: 3.75 G, BID
     Route: 048
     Dates: start: 201706, end: 201706
  3. XYREM [Suspect]
     Active Substance: SODIUM OXYBATE
     Dosage: 3.25 G, BID
     Route: 048
     Dates: start: 201705, end: 201706
  4. XYREM [Suspect]
     Active Substance: SODIUM OXYBATE
     Dosage: 4.5 G, BID
     Route: 048
     Dates: start: 201706

REACTIONS (16)
  - Depression [Unknown]
  - Feeling jittery [Not Recovered/Not Resolved]
  - Feeling abnormal [Not Recovered/Not Resolved]
  - Restlessness [Not Recovered/Not Resolved]
  - Abdominal pain lower [Unknown]
  - Anxiety [Not Recovered/Not Resolved]
  - Headache [Not Recovered/Not Resolved]
  - Chest discomfort [Unknown]
  - Back pain [Unknown]
  - Chest pain [Unknown]
  - Fatigue [Not Recovered/Not Resolved]
  - Heart rate decreased [Unknown]
  - Urine odour abnormal [Unknown]
  - Respiratory rate decreased [Not Recovered/Not Resolved]
  - Euphoric mood [Unknown]
  - Pollakiuria [Unknown]

NARRATIVE: CASE EVENT DATE: 201705
